FAERS Safety Report 8838797 (Version 1)
Quarter: 2012Q4

REPORT INFORMATION
  Report Type: 
  Country: IS (occurrence: IS)
  Receive Date: 20121014
  Receipt Date: 20121014
  Transmission Date: 20130627
  Serious: Yes (Hospitalization)
  Sender: FDA-Public Use
  Company Number: IS-TEVA-363655ISR

PATIENT
  Sex: Female

DRUGS (9)
  1. GABAPENTIN RATIOPHARM 300 MG [Suspect]
     Indication: NEURALGIA
     Dosage: 900 Milligram Daily; 1 capsule in the morning and 2 capsules in the evening
     Route: 048
     Dates: start: 201206, end: 201208
  2. HALCION 0,25MG [Concomitant]
     Route: 048
  3. PARK?D?N [Concomitant]
     Route: 048
  4. PREDNISOLONE ACTAVIS [Concomitant]
     Route: 048
  5. PARATABS RETARD [Concomitant]
     Route: 048
  6. ENTOCORT 3MG [Concomitant]
     Route: 048
  7. RELIFEX 500MG [Concomitant]
     Route: 048
  8. SIMVASTATIN ACTAVIS [Concomitant]
     Route: 048
  9. AMITRIPTYLINE 10MG [Concomitant]
     Route: 048

REACTIONS (42)
  - Viral infection [Recovering/Resolving]
  - Somnolence [Unknown]
  - Dizziness [Unknown]
  - Coordination abnormal [Unknown]
  - Fatigue [Unknown]
  - Pyrexia [Unknown]
  - Delirium [Unknown]
  - Mood swings [Unknown]
  - Depression [Unknown]
  - Anxiety [Unknown]
  - Nervousness [Unknown]
  - Muscle spasms [Unknown]
  - Aphonia [Unknown]
  - Amnesia [Unknown]
  - Tremor [Unknown]
  - Headache [Unknown]
  - Skin sensitisation [Unknown]
  - Undersensing [Unknown]
  - Vision blurred [Unknown]
  - Vertigo [Unknown]
  - Oropharyngeal pain [Unknown]
  - Nasal dryness [Unknown]
  - Cough [Unknown]
  - Tooth disorder [Unknown]
  - Gingival disorder [Unknown]
  - Constipation [Unknown]
  - Dry mouth [Unknown]
  - Face oedema [Unknown]
  - Contusion [Unknown]
  - Rash [Unknown]
  - Pruritus [Unknown]
  - Acne [Unknown]
  - Arthralgia [Unknown]
  - Myalgia [Unknown]
  - Inflammation [Unknown]
  - Gait disturbance [Unknown]
  - Asthenia [Unknown]
  - Influenza like illness [Unknown]
  - Musculoskeletal stiffness [Unknown]
  - Tinnitus [Unknown]
  - Nausea [Unknown]
  - Activities of daily living impaired [Unknown]
